FAERS Safety Report 4614900-0 (Version None)
Quarter: 2005Q1

REPORT INFORMATION
  Report Type: 
  Country: None (occurrence: None)
  Receive Date: 20050322
  Receipt Date: 20050314
  Transmission Date: 20050727
  Serious: Yes (Disabling)
  Sender: FDA-Public Use
  Company Number: US-MERCK-0503USA02357

PATIENT
  Sex: Male

DRUGS (8)
  1. PEPCID [Suspect]
     Indication: GASTROOESOPHAGEAL REFLUX DISEASE
     Route: 048
     Dates: start: 20050302, end: 20050313
  2. PEPCID [Suspect]
     Route: 048
  3. CREON [Concomitant]
     Route: 065
  4. SINGULAIR [Concomitant]
     Route: 048
  5. CLARINEX [Concomitant]
     Route: 065
  6. VENTOLIN [Concomitant]
     Route: 065
  7. INTAL [Concomitant]
     Route: 065
  8. PULMICORT [Concomitant]
     Route: 065

REACTIONS (3)
  - DISORIENTATION [None]
  - HALLUCINATION [None]
  - LOSS OF CONSCIOUSNESS [None]
